FAERS Safety Report 8839917 (Version 6)
Quarter: 2013Q2

REPORT INFORMATION
  Report Type: Report from Study
  Country: US (occurrence: US)
  Receive Date: 20121015
  Receipt Date: 20130523
  Transmission Date: 20140414
  Serious: Yes (Hospitalization)
  Sender: FDA-Public Use
  Company Number: PHHO2012US014630

PATIENT
  Age: 25 Year
  Sex: Female
  Weight: 65.8 kg

DRUGS (29)
  1. AFINITOR [Suspect]
     Indication: COLORECTAL CANCER
     Dosage: 10 MG, UNK
     Dates: start: 20120910, end: 20120924
  2. AFINITOR [Suspect]
     Dosage: 7.5 MG, UNK
  3. FOLFOX-6 [Suspect]
     Indication: COLORECTAL CANCER
     Dosage: UNK
     Dates: start: 20120910, end: 20121203
  4. AVASTIN [Suspect]
     Indication: COLORECTAL CANCER
     Dosage: 360 MG DAY Q 2WK
     Route: 042
     Dates: start: 20120910, end: 20121203
  5. DEXAMETHASONE SODIUM PHOSPHATE [Concomitant]
     Dosage: 12 MG ONCE PRE-IV TREATMENT
     Dates: start: 20120910
  6. OXALIPLATIN [Concomitant]
     Dosage: 162 MG, UNK
     Dates: start: 20120910
  7. LEUCOVORIN CALCIUM [Concomitant]
     Dosage: 760 MG, BIW
     Route: 042
     Dates: start: 20120910
  8. 5-FU [Concomitant]
     Dosage: 4560 MG IV PUMP 46 HR INFUSION Q 2 WKS
     Route: 042
     Dates: start: 20120910
  9. AUGMENTIN [Concomitant]
     Indication: GINGIVAL INFECTION
     Dosage: 875 MG, Q12H
     Dates: start: 20120927
  10. ATIVAN [Concomitant]
     Indication: NAUSEA
     Dosage: 1 MG, Q4H
     Dates: start: 20121001
  11. COMPAZINE [Concomitant]
     Indication: NAUSEA
     Dosage: 10 MG, Q4H
     Dates: start: 201001
  12. NYSTATIN [Concomitant]
     Indication: MUCOSAL INFLAMMATION
     Dosage: 100000 U/ML, Q4H
     Dates: start: 20121003
  13. VALTREX [Concomitant]
     Dosage: 2000/500 MG, Q12H
  14. ZOFRAN [Concomitant]
     Indication: NAUSEA
     Dosage: 4 MG, TID
     Route: 048
     Dates: start: 20070720
  15. COLACE [Concomitant]
     Dosage: 100 MG, BID
     Route: 048
     Dates: start: 20080411
  16. MOTRIN [Concomitant]
     Indication: PAIN
     Dosage: 400 MG, Q6H
     Route: 048
     Dates: start: 20080411
  17. PITOCIN [Concomitant]
     Dosage: 30 U, UNK
     Dates: start: 20080411, end: 20080411
  18. ACETAMINOPHEN [Concomitant]
     Dosage: 650 MG, Q4H
     Route: 048
     Dates: start: 20080411
  19. LOVENOX [Concomitant]
  20. PROTONIX [Concomitant]
  21. POTASSIUM CHLORIDE [Concomitant]
  22. IBUPROFEN [Concomitant]
  23. MAGIC MOUTHWASH [Concomitant]
  24. AMBIEN [Concomitant]
  25. FLAGYL [Concomitant]
  26. ROCEPHIN [Concomitant]
  27. DECADRON [Concomitant]
  28. NEULASTA [Concomitant]
  29. ANUSOL HC [Concomitant]

REACTIONS (4)
  - Febrile neutropenia [Unknown]
  - Dehydration [Recovered/Resolved]
  - Cholecystitis [Recovered/Resolved with Sequelae]
  - Pancreatitis [Recovering/Resolving]
